FAERS Safety Report 5740575-3 (Version None)
Quarter: 2008Q2

REPORT INFORMATION
  Report Type: 
  Country: None (occurrence: None)
  Receive Date: 20080516
  Receipt Date: 20080508
  Transmission Date: 20081010
  Serious: Yes (Other)
  Sender: FDA-Public Use
  Company Number: IE-AMGEN-US274850

PATIENT
  Sex: Female

DRUGS (3)
  1. ENBREL [Suspect]
     Indication: RHEUMATOID ARTHRITIS
     Route: 058
     Dates: start: 20071126
  2. ACETAMINOPHEN [Concomitant]
     Dosage: 2 TABLET EVERY 1 PRN
     Route: 048
  3. LEXOTAN [Concomitant]
     Dosage: 1.5 MG EVERY 1 PRN
     Route: 048

REACTIONS (3)
  - CONDITION AGGRAVATED [None]
  - NEUTROPENIA [None]
  - RHEUMATOID ARTHRITIS [None]
